FAERS Safety Report 15577859 (Version 1)
Quarter: 2018Q4

REPORT INFORMATION
  Report Type: Spontaneous
  Country: US (occurrence: US)
  Receive Date: 20181102
  Receipt Date: 20181102
  Transmission Date: 20190205
  Serious: No
  Sender: FDA-Public Use
  Company Number: US-PFIZER INC-2018445132

PATIENT
  Age: 15 Year
  Sex: Female

DRUGS (1)
  1. TOBRAMYCIN. [Suspect]
     Active Substance: TOBRAMYCIN
     Dosage: UNK
     Route: 042

REACTIONS (3)
  - Pyrexia [Unknown]
  - Urticaria [Unknown]
  - Asthma [Unknown]
